FAERS Safety Report 23981548 (Version 1)
Quarter: 2024Q2

REPORT INFORMATION
  Report Type: Spontaneous
  Country: CN (occurrence: CN)
  Receive Date: 20240617
  Receipt Date: 20240617
  Transmission Date: 20240715
  Serious: Yes (Hospitalization, Other)
  Sender: FDA-Public Use
  Company Number: CN-PURACAP-CN-2024EPCLIT00720

PATIENT
  Age: 52 Year
  Sex: Female

DRUGS (1)
  1. AMLODIPINE [Suspect]
     Active Substance: AMLODIPINE BESYLATE
     Indication: Product used for unknown indication
     Route: 065

REACTIONS (6)
  - Cardiac failure high output [Recovering/Resolving]
  - Pulmonary hypertension [Recovering/Resolving]
  - Liver injury [Recovered/Resolved]
  - Shock [Recovering/Resolving]
  - Toxicity to various agents [Recovered/Resolved]
  - Overdose [Unknown]
